FAERS Safety Report 9369154 (Version 1)
Quarter: 2013Q2

REPORT INFORMATION
  Report Type: Report from Study
  Country: US (occurrence: US)
  Receive Date: 20130626
  Receipt Date: 20130626
  Transmission Date: 20140414
  Serious: Yes (Hospitalization)
  Sender: FDA-Public Use
  Company Number: PHEH2013US013631

PATIENT
  Age: 23 Year
  Sex: Female

DRUGS (2)
  1. TOBI [Suspect]
     Dosage: 1 DF, DAILY
  2. CAYSTON [Suspect]
     Dosage: 1 DF, DAILY

REACTIONS (1)
  - Pseudomonas infection [Recovered/Resolved]
